FAERS Safety Report 6277152-4 (Version None)
Quarter: 2009Q3

REPORT INFORMATION
  Report Type: 
  Country: None (occurrence: None)
  Receive Date: 20090722
  Receipt Date: 20090311
  Transmission Date: 20100115
  Serious: No
  Sender: FDA-Public Use
  Company Number: US-BRISTOL-MYERS SQUIBB COMPANY-14483341

PATIENT
  Age: 85 Year
  Sex: Male
  Weight: 79 kg

DRUGS (3)
  1. COUMADIN [Suspect]
     Indication: ATRIAL FIBRILLATION
     Dosage: DURATION: APPROXIMATELY 1 YEAR.
  2. TOPROL-XL [Concomitant]
  3. LIPITOR [Concomitant]

REACTIONS (2)
  - RESPIRATORY TRACT INFECTION [None]
  - TACHYCARDIA [None]
